FAERS Safety Report 9790645 (Version 1)
Quarter: 2013Q4

REPORT INFORMATION
  Report Type: Spontaneous
  Country: US (occurrence: US)
  Receive Date: 20131231
  Receipt Date: 20131231
  Transmission Date: 20140711
  Serious: Yes (Other)
  Sender: FDA-Public Use
  Company Number: US-GLAXOSMITHKLINE-A1054936A

PATIENT
  Age: 60 Year
  Sex: Male
  Weight: 102.3 kg

DRUGS (4)
  1. VOTRIENT [Suspect]
     Indication: HEPATIC CANCER
     Dosage: 800MG PER DAY
     Route: 048
  2. HYDROCHLOROTHIAZIDE [Concomitant]
  3. SIMVASTATIN [Concomitant]
  4. ASPIRIN [Concomitant]

REACTIONS (2)
  - Hepatectomy [Unknown]
  - Drug ineffective [Unknown]
